FAERS Safety Report 10029722 (Version 1)
Quarter: 2014Q1

REPORT INFORMATION
  Report Type: Spontaneous
  Country: US (occurrence: None)
  Receive Date: 20140321
  Receipt Date: 20140321
  Transmission Date: 20141002
  Serious: Yes (Other)
  Sender: FDA-Public Use
  Company Number: None

PATIENT
  Age: 52 Year
  Sex: Male
  Weight: 92.4 kg

DRUGS (1)
  1. SUNITINIB MALATE (SU011248 L-MALATE; SUTENT) [Suspect]
     Dates: end: 20140216

REACTIONS (1)
  - Blood pressure increased [None]
